FAERS Safety Report 8949423 (Version 1)
Quarter: 2012Q4

REPORT INFORMATION
  Report Type: 
  Country: US (occurrence: US)
  Receive Date: 20121206
  Receipt Date: 20121206
  Transmission Date: 20130627
  Serious: Yes (Hospitalization)
  Sender: FDA-Public Use
  Company Number: US-ELI_LILLY_AND_COMPANY-US201211008773

PATIENT
  Sex: Male

DRUGS (2)
  1. ZYPREXA [Suspect]
     Dosage: 1 DF, unknown
  2. DEPAKOTE [Concomitant]
     Dosage: 1 DF, unknown

REACTIONS (2)
  - Hospitalisation [Unknown]
  - Poisoning [Unknown]
